FAERS Safety Report 9714790 (Version 1)
Quarter: 2013Q4

REPORT INFORMATION
  Report Type: Spontaneous
  Country: TR (occurrence: TR)
  Receive Date: 20131126
  Receipt Date: 20131126
  Transmission Date: 20140711
  Serious: Yes (Disabling)
  Sender: FDA-Public Use
  Company Number: TR-MYLANLABS-2013S1026190

PATIENT
  Age: 20 Year
  Sex: Female

DRUGS (2)
  1. ISOTRETINOIN [Suspect]
     Indication: ACNE
     Dosage: INITIAL DOSE OF 30 MG/D FOR 1 MONTH
     Route: 065
  2. ISOTRETINOIN [Suspect]
     Indication: ACNE
     Dosage: 40 MG/D FOR 2 MONTHS
     Route: 065

REACTIONS (1)
  - Sacroiliitis [Recovered/Resolved]
